FAERS Safety Report 25674402 (Version 1)
Quarter: 2025Q3

REPORT INFORMATION
  Report Type: Spontaneous
  Country: US (occurrence: US)
  Receive Date: 20250813
  Receipt Date: 20250813
  Transmission Date: 20251021
  Serious: Yes (Other)
  Sender: AMGEN
  Company Number: US-AMGEN-USASP2025157414

PATIENT
  Age: 64 Year
  Sex: Female
  Weight: 99.336 kg

DRUGS (2)
  1. PREDNISONE [Suspect]
     Active Substance: PREDNISONE
     Indication: Product used for unknown indication
     Route: 065
  2. THYROID [Concomitant]
     Active Substance: LEVOTHYROXINE\LIOTHYRONINE
     Route: 065

REACTIONS (16)
  - Hyperthyroidism [Unknown]
  - Rheumatoid arthritis [Unknown]
  - Compression fracture [Unknown]
  - Spinal osteoarthritis [Unknown]
  - Thyroid mass [Unknown]
  - Malabsorption [Unknown]
  - Wrist fracture [Unknown]
  - Hand fracture [Unknown]
  - Fall [Unknown]
  - Body height decreased [Unknown]
  - Osteopenia [Unknown]
  - Anxiety [Unknown]
  - Attention deficit hyperactivity disorder [Unknown]
  - Hypovitaminosis [Unknown]
  - Depression [Unknown]
  - Headache [Unknown]
